FAERS Safety Report 6364787-3 (Version None)
Quarter: 2009Q3

REPORT INFORMATION
  Report Type: 
  Country: None (occurrence: None)
  Receive Date: 20090919
  Receipt Date: 20090728
  Transmission Date: 20100115
  Serious: No
  Sender: FDA-Public Use
  Company Number: US-ABBOTT-09P-163-0588449-00

PATIENT
  Sex: Female
  Weight: 52.21 kg

DRUGS (12)
  1. HUMIRA [Suspect]
     Indication: CROHN'S DISEASE
     Route: 058
     Dates: start: 20090601
  2. HUMIRA [Suspect]
     Route: 058
     Dates: start: 20090301, end: 20090501
  3. HUMIRA [Suspect]
     Dates: start: 20070101, end: 20090301
  4. HYOSCAMINE [Concomitant]
     Indication: ABDOMINAL PAIN UPPER
     Dosage: AS NEEDED
     Route: 060
  5. SAVELLA [Concomitant]
     Indication: DEPRESSION
     Route: 048
     Dates: start: 20090714
  6. VIVELLE-DOT [Concomitant]
     Indication: HORMONE REPLACEMENT THERAPY
     Route: 061
  7. PROMETRIUM [Concomitant]
     Indication: HORMONE REPLACEMENT THERAPY
     Route: 048
  8. CLONAZEPAM [Concomitant]
     Indication: ANXIETY
     Route: 048
  9. SOMA [Concomitant]
     Indication: MUSCLE SPASMS
     Dosage: AS NEEDED
     Route: 048
  10. SOMA [Concomitant]
     Indication: PAIN
  11. LORTAB [Concomitant]
     Indication: SPINAL FUSION SURGERY
     Dosage: AS NEEDED
     Route: 048
  12. LORTAB [Concomitant]
     Indication: PAIN

REACTIONS (3)
  - SINUSITIS [None]
  - SKIN ULCER [None]
  - STAPHYLOCOCCAL INFECTION [None]
